FAERS Safety Report 10246585 (Version 1)
Quarter: 2014Q2

REPORT INFORMATION
  Report Type: Spontaneous
  Country: US (occurrence: None)
  Receive Date: 20140617
  Receipt Date: 20140617
  Transmission Date: 20141212
  Serious: Yes (Other)
  Sender: FDA-Public Use
  Company Number: None

PATIENT
  Age: 47 Year
  Sex: Female
  Weight: 68.04 kg

DRUGS (1)
  1. MIRVASO 33 GALDERMA [Suspect]
     Indication: ROSACEA
     Dosage: PEA AMOUNT  ONCE DAILY  APPLIED TO A SURFACE, USUALLY THE SKIN
     Route: 061
     Dates: start: 20140608, end: 20140615

REACTIONS (3)
  - Swelling face [None]
  - Rash [None]
  - Rash erythematous [None]
